FAERS Safety Report 6757073-0 (Version None)
Quarter: 2010Q2

REPORT INFORMATION
  Report Type: 
  Country: None (occurrence: None)
  Receive Date: 20100604
  Receipt Date: 20100524
  Transmission Date: 20101027
  Serious: Yes (Other)
  Sender: FDA-Public Use
  Company Number: US-ELI_LILLY_AND_COMPANY-US201004003523

PATIENT
  Age: 63 Year
  Sex: Male

DRUGS (2)
  1. EFFIENT [Suspect]
     Indication: THROMBOSIS PROPHYLAXIS
     Dosage: 10 MG, UNK
  2. EFFIENT [Suspect]
     Dosage: 5 MG, UNK

REACTIONS (1)
  - THROMBOSIS [None]
